FAERS Safety Report 5258381-5 (Version None)
Quarter: 2007Q1

REPORT INFORMATION
  Report Type: 
  Country: None (occurrence: None)
  Receive Date: 20061117
  Receipt Date: 20060303
  Transmission Date: 20070707
  Serious: Yes (Other)
  Sender: FDA-Public Use
  Company Number: US-JNJFOC-20060301284

PATIENT
  Age: 65 Year
  Sex: Female

DRUGS (5)
  1. LEVAQUIN [Suspect]
     Indication: BRONCHITIS
     Dosage: 750 MG, 1 IN 1 DAY, ORAL
     Route: 048
     Dates: start: 20060223, end: 20060223
  2. LEVAQUIN [Suspect]
     Indication: SINUSITIS
     Dosage: 750 MG, 1 IN 1 DAY, ORAL
     Route: 048
     Dates: start: 20060223, end: 20060223
  3. CRANTEX LA (ALL OTHER NON-THERAPEUTIC PRODUCTS) [Concomitant]
  4. DIOVAN HCT (CO-DIOVAN) TABLET [Concomitant]
  5. PREMARIN [Concomitant]

REACTIONS (1)
  - HYPERSENSITIVITY [None]
